FAERS Safety Report 4549556-9 (Version None)
Quarter: 2005Q1

REPORT INFORMATION
  Report Type: 
  Country: None (occurrence: None)
  Receive Date: 20050111
  Receipt Date: 20050104
  Transmission Date: 20050727
  Serious: Yes (Other)
  Sender: FDA-Public Use
  Company Number: US-JNJFOC-20040608010

PATIENT
  Sex: Male
  Weight: 103.87 kg

DRUGS (2)
  1. NIZORAL [Suspect]
     Indication: PROSTATE CANCER
     Route: 049
  2. CORTISONE [Concomitant]
     Indication: HORMONE REPLACEMENT THERAPY
     Route: 065
     Dates: start: 20020101

REACTIONS (1)
  - PROSTATIC SPECIFIC ANTIGEN INCREASED [None]
